FAERS Safety Report 5068437-8 (Version None)
Quarter: 2006Q3

REPORT INFORMATION
  Report Type: 
  Country: None (occurrence: None)
  Receive Date: 20060802
  Receipt Date: 20050927
  Transmission Date: 20061208
  Serious: No
  Sender: FDA-Public Use
  Company Number: US-BRISTOL-MYERS SQUIBB COMPANY-13124110

PATIENT
  Age: 74 Year
  Sex: Female
  Weight: 61 kg

DRUGS (4)
  1. COUMADIN [Suspect]
     Indication: PULMONARY EMBOLISM
     Dosage: INITIALLY, ON GENERIC BUT SWITCHED TO BMS COUMADIN;CURRENTLY ON 10MG QD + USING SAMPLES FROM MD.
     Dates: start: 20030101
  2. PREDNISONE [Concomitant]
  3. ENTOCORT [Concomitant]
  4. PEPTO-BISMOL [Concomitant]

REACTIONS (1)
  - INTERNATIONAL NORMALISED RATIO ABNORMAL [None]
